FAERS Safety Report 18822122 (Version 1)
Quarter: 2021Q1

REPORT INFORMATION
  Report Type: Spontaneous
  Country: US (occurrence: US)
  Receive Date: 20210202
  Receipt Date: 20210202
  Transmission Date: 20210419
  Serious: Yes (Hospitalization)
  Sender: FDA-Public Use
  Company Number: None

PATIENT
  Age: 74 Year
  Sex: Female

DRUGS (10)
  1. OMEPRAZOLE. [Concomitant]
     Active Substance: OMEPRAZOLE
  2. SIMVASTATIN. [Concomitant]
     Active Substance: SIMVASTATIN
  3. SILDENAFIL 20 MG TAB [Suspect]
     Active Substance: SILDENAFIL
     Indication: PULMONARY ARTERIAL HYPERTENSION
     Route: 048
     Dates: start: 20140226
  4. AMOX/K CLAV [Concomitant]
     Active Substance: AMOXICILLIN\CLAVULANATE POTASSIUM
  5. LEVOTHROXINE [Concomitant]
     Active Substance: LEVOTHYROXINE
  6. XARELTO [Concomitant]
     Active Substance: RIVAROXABAN
  7. PROBIOTIC [Concomitant]
     Active Substance: PROBIOTICS NOS
  8. COLCHINE [Concomitant]
     Active Substance: COLCHICINE
  9. MEMANTINE. [Concomitant]
     Active Substance: MEMANTINE
  10. PILOCARPINE. [Concomitant]
     Active Substance: PILOCARPINE

REACTIONS (2)
  - Thrombophlebitis [None]
  - Therapy interrupted [None]

NARRATIVE: CASE EVENT DATE: 20210101
